FAERS Safety Report 9954933 (Version 2)
Quarter: 2014Q1

REPORT INFORMATION
  Report Type: Spontaneous
  Country: PR (occurrence: PR)
  Receive Date: 20140304
  Receipt Date: 20140304
  Transmission Date: 20141002
  Serious: No
  Sender: FDA-Public Use
  Company Number: PR-ABBVIE-12P-131-1021227-00

PATIENT
  Sex: Male
  Weight: 131.66 kg

DRUGS (2)
  1. HUMIRA [Suspect]
     Indication: PSORIASIS
     Route: 058
     Dates: start: 2008
  2. HUMIRA [Suspect]
     Route: 058
     Dates: end: 201212

REACTIONS (1)
  - Psoriasis [Recovering/Resolving]
